FAERS Safety Report 25671974 (Version 5)
Quarter: 2025Q4

REPORT INFORMATION
  Report Type: Report from Study
  Country: US (occurrence: US)
  Receive Date: 20250812
  Receipt Date: 20251030
  Transmission Date: 20260117
  Serious: Yes (Hospitalization)
  Sender: ABBVIE
  Company Number: US-ABBVIE-6408203

PATIENT
  Age: 78 Year
  Sex: Female

DRUGS (5)
  1. RINVOQ [Suspect]
     Active Substance: UPADACITINIB
     Indication: Rheumatoid arthritis
     Route: 048
     Dates: start: 20250611, end: 20250728
  2. RINVOQ [Suspect]
     Active Substance: UPADACITINIB
     Indication: Rheumatoid arthritis
     Route: 048
     Dates: start: 2025, end: 2025
  3. RINVOQ [Suspect]
     Active Substance: UPADACITINIB
     Indication: Rheumatoid arthritis
     Route: 048
     Dates: start: 20250929
  4. RINVOQ [Suspect]
     Active Substance: UPADACITINIB
     Indication: Rheumatoid arthritis
     Route: 048
     Dates: start: 20250404, end: 20250728
  5. RINVOQ [Suspect]
     Active Substance: UPADACITINIB
     Indication: Rheumatoid arthritis
     Dosage: STOP DATE;JUL 2025
     Route: 048
     Dates: start: 20250722

REACTIONS (10)
  - Urosepsis [Recovering/Resolving]
  - Cystitis [Recovered/Resolved]
  - Immunodeficiency [Unknown]
  - Tooth fracture [Recovering/Resolving]
  - Tooth extraction [Recovering/Resolving]
  - Dysuria [Unknown]
  - Pollakiuria [Recovering/Resolving]
  - Insomnia [Recovering/Resolving]
  - Rheumatoid arthritis [Unknown]
  - Kidney infection [Unknown]

NARRATIVE: CASE EVENT DATE: 20250101
